FAERS Safety Report 19073518 (Version 1)
Quarter: 2021Q1

REPORT INFORMATION
  Report Type: Spontaneous
  Country: US (occurrence: US)
  Receive Date: 20210330
  Receipt Date: 20210330
  Transmission Date: 20210420
  Serious: Yes (Death)
  Sender: FDA-Public Use
  Company Number: None

PATIENT
  Age: 67 Year
  Sex: Male

DRUGS (10)
  1. METOPROLOL TARTRATE. [Concomitant]
     Active Substance: METOPROLOL TARTRATE
  2. MIDODRINE [Concomitant]
     Active Substance: MIDODRINE
  3. CALCIUM ACETATE. [Concomitant]
     Active Substance: CALCIUM ACETATE
  4. GABAPENTIN. [Concomitant]
     Active Substance: GABAPENTIN
  5. ALLOPURINOL. [Concomitant]
     Active Substance: ALLOPURINOL
  6. WARFARIN [Concomitant]
     Active Substance: WARFARIN
  7. AMIODARONE [Concomitant]
     Active Substance: AMIODARONE
  8. VELTASSA [Suspect]
     Active Substance: PATIROMER
     Indication: HYPERKALAEMIA
     Route: 048
     Dates: start: 20201019, end: 20210320
  9. DIGOXIN. [Concomitant]
     Active Substance: DIGOXIN
  10. CINACALCET. [Concomitant]
     Active Substance: CINACALCET

REACTIONS (1)
  - Death [None]

NARRATIVE: CASE EVENT DATE: 20210320
